FAERS Safety Report 21347948 (Version 2)
Quarter: 2022Q4

REPORT INFORMATION
  Report Type: Other
  Country: BE (occurrence: None)
  Receive Date: 20220919
  Receipt Date: 20221017
  Transmission Date: 20230113
  Serious: No
  Sender: FDA-Public Use
  Company Number: BE-ROCHE-3178413

PATIENT
  Age: 40 Year
  Sex: Female

DRUGS (15)
  1. OCRELIZUMAB [Suspect]
     Active Substance: OCRELIZUMAB
     Indication: Relapsing-remitting multiple sclerosis
     Dosage: ON 12/AUG/2019, THE PATIENT RECEIVED SUBSEQUENT DOSE OF OCRELIZUMAB 250 ML.
     Route: 042
     Dates: start: 20190729
  2. OCRELIZUMAB [Suspect]
     Active Substance: OCRELIZUMAB
     Route: 065
     Dates: start: 20200224, end: 20200224
  3. OCRELIZUMAB [Suspect]
     Active Substance: OCRELIZUMAB
     Route: 065
     Dates: start: 20200827, end: 20200827
  4. OCRELIZUMAB [Suspect]
     Active Substance: OCRELIZUMAB
     Route: 065
     Dates: start: 20210309, end: 20210309
  5. OCRELIZUMAB [Suspect]
     Active Substance: OCRELIZUMAB
     Route: 065
     Dates: start: 20210914, end: 20210914
  6. OCRELIZUMAB [Suspect]
     Active Substance: OCRELIZUMAB
     Route: 065
     Dates: start: 20220325, end: 20220325
  7. OCRELIZUMAB [Suspect]
     Active Substance: OCRELIZUMAB
     Route: 065
     Dates: start: 20220927, end: 20220927
  8. LEVOTHYROXINE [Concomitant]
     Active Substance: LEVOTHYROXINE
     Route: 048
  9. DESO [Concomitant]
     Indication: Prophylaxis
     Route: 048
  10. HYALURONATE SODIUM [Concomitant]
     Active Substance: HYALURONATE SODIUM
     Route: 047
     Dates: start: 20220126
  11. HYLO DUAL INTENSE [Concomitant]
     Indication: Prophylaxis
     Route: 047
     Dates: start: 20220126
  12. LORAZEPAM [Concomitant]
     Active Substance: LORAZEPAM
     Route: 048
     Dates: start: 20210914
  13. LEVOCETIRIZINE DIHYDROCHLORIDE [Concomitant]
     Active Substance: LEVOCETIRIZINE DIHYDROCHLORIDE
     Route: 048
     Dates: start: 20220927, end: 20220927
  14. SOLU-MEDROL [Concomitant]
     Active Substance: METHYLPREDNISOLONE SODIUM SUCCINATE
     Route: 042
     Dates: start: 20220927, end: 20220927
  15. OMEGA EYE [Concomitant]
     Indication: Prophylaxis
     Dosage: PRN
     Route: 061
     Dates: start: 20220126

REACTIONS (1)
  - Genital herpes [Recovering/Resolving]

NARRATIVE: CASE EVENT DATE: 20220801
